FAERS Safety Report 9539930 (Version 1)
Quarter: 2013Q3

REPORT INFORMATION
  Report Type: Spontaneous
  Country: US (occurrence: US)
  Receive Date: 20130920
  Receipt Date: 20130920
  Transmission Date: 20140515
  Serious: No
  Sender: FDA-Public Use
  Company Number: US-PURDUE-USA-2011-0069002

PATIENT
  Sex: Male

DRUGS (1)
  1. DILAUDID TABLET [Suspect]
     Indication: PAIN
     Dosage: 8 MG, PRN

REACTIONS (2)
  - Nausea [Not Recovered/Not Resolved]
  - Drug effect decreased [Not Recovered/Not Resolved]
